FAERS Safety Report 7850429-4 (Version None)
Quarter: 2011Q4

REPORT INFORMATION
  Report Type: 
  Country: None (occurrence: None)
  Receive Date: 20111026
  Receipt Date: 20111026
  Transmission Date: 20120403
  Serious: Yes (Life-Threatening, Disabling, Other)
  Sender: FDA-Public Use
  Company Number: None

PATIENT
  Age: 42 Year
  Sex: Female
  Weight: 43.544 kg

DRUGS (1)
  1. PARAGARD T 380A [Suspect]
     Indication: TOXICITY TO VARIOUS AGENTS
     Dosage: 1
     Route: 015
     Dates: start: 20071017, end: 20110830

REACTIONS (15)
  - FATIGUE [None]
  - MIGRAINE [None]
  - NIGHT SWEATS [None]
  - VISUAL ACUITY REDUCED [None]
  - SKIN DISORDER [None]
  - PRURITUS [None]
  - SKIN ULCER [None]
  - ARTHRALGIA [None]
  - PYREXIA [None]
  - DEVICE TOXICITY [None]
  - MALAISE [None]
  - DYSPLASTIC NAEVUS [None]
  - CANDIDIASIS [None]
  - NAUSEA [None]
  - DIZZINESS [None]
